FAERS Safety Report 8966611 (Version 1)
Quarter: 2012Q4

REPORT INFORMATION
  Report Type: Report from Study
  Country: TH (occurrence: TH)
  Receive Date: 20121214
  Receipt Date: 20121214
  Transmission Date: 20130627
  Serious: Yes (Death, Life-Threatening, Hospitalization, Other)
  Sender: FDA-Public Use
  Company Number: TH-TEVA-375130ISR

PATIENT
  Age: 68 Year
  Sex: Female
  Weight: 47.1 kg

DRUGS (29)
  1. METHOTREXATE [Suspect]
     Indication: RHEUMATOID ARTHRITIS
     Dosage: 1.0714 Milligram Daily;
  2. METHOTREXATE [Suspect]
     Dosage: 2.8571 Milligram Daily;
     Dates: start: 20071212, end: 20080424
  3. METHOTREXATE [Suspect]
     Dosage: 2.8571 Milligram Daily;
     Dates: start: 20080501, end: 20080506
  4. PREDNISOLONE [Suspect]
     Indication: RHEUMATOID ARTHRITIS
     Dosage: 10 Milligram Daily;
     Dates: start: 20080107, end: 20080429
  5. PREDNISOLONE [Suspect]
     Dosage: 20 Milligram Daily;
     Dates: start: 20080430, end: 20080501
  6. PREDNISOLONE [Suspect]
     Dosage: 10 Milligram Daily;
     Dates: start: 20080502, end: 20080509
  7. OCRELIZUMAB [Suspect]
     Indication: RHEUMATOID ARTHRITIS
     Dosage: 200 or 500 mg
     Route: 042
     Dates: start: 20080207, end: 20080220
  8. CACO3 [Concomitant]
     Dosage: 1200 Milligram Daily;
     Dates: start: 20021107, end: 20080509
  9. AMLODIPINE [Concomitant]
     Dates: start: 20060713, end: 20080508
  10. ATENOLOL [Concomitant]
     Dosage: 25 Milligram Daily;
     Dates: start: 20060325, end: 20080501
  11. BROMHEXINE [Concomitant]
     Dates: start: 20080429, end: 20080501
  12. FUROSEMIDE [Concomitant]
     Dosage: 160 Milligram Daily;
     Dates: start: 20080501, end: 20080508
  13. DEXAMETHASONE [Concomitant]
     Dosage: 32 Milligram Daily;
     Dates: start: 20080501, end: 20080504
  14. IPRATROPIUM [Concomitant]
     Dosage: .02 Milligram Daily;
     Dates: start: 20080502, end: 20080505
  15. HYOSCINE BUTYLBROMIDE (HYOSCINE N-BUTYL BROMIDE) [Concomitant]
     Dates: start: 20080501, end: 20080501
  16. SODIUM CHLORIDE [Concomitant]
     Dosage: 480 ml Daily; 20 mL,1 in 1 hr
     Dates: start: 20080501, end: 20080502
  17. N-3 PUFA (UNSATURATED FATTY ACIDS) [Concomitant]
     Dates: start: 20080501, end: 20080502
  18. N-3 PUFA (UNSATURATED FATTY ACIDS) [Concomitant]
     Dates: start: 20080508, end: 20080509
  19. AMIKACIN [Concomitant]
     Dosage: 750 Milligram Daily;
     Dates: start: 20080502, end: 20080505
  20. DOPAMINE [Concomitant]
     Dosage: 5 unit
     Dates: start: 20080508, end: 20080509
  21. SULPERAZON [Concomitant]
     Dosage: 3 Gram Daily;
     Dates: start: 20080509, end: 20080509
  22. TRIAMCINOLONE ACETONIDE [Concomitant]
     Dosage: DOSE REPORTED AS 2 TIME.
     Dates: start: 20080220, end: 20080501
  23. MAXZIDE [Concomitant]
     Dosage: 2.5 Milligram Daily;
     Dates: start: 20080305, end: 20080501
  24. PARACETAMOL [Concomitant]
     Dosage: 1 Gram Daily;
     Dates: start: 20080221, end: 20080501
  25. TRAMADOL [Concomitant]
     Dosage: 100 Milligram Daily;
     Dates: start: 20080221, end: 20080429
  26. MULTIVITAMINS [Concomitant]
     Dosage: 2 Dosage forms Daily;
     Dates: start: 20080221, end: 20080509
  27. OMEPRAZOLE [Concomitant]
     Dosage: 40 Milligram Daily;
     Dates: start: 20040729, end: 20080501
  28. FERROUS FUMARATE [Concomitant]
     Dosage: 400 Milligram Daily;
     Dates: start: 20041118, end: 20080509
  29. FOLIC ACID [Concomitant]
     Dosage: 5 Milligram Daily;
     Dates: start: 20080321, end: 20080509

REACTIONS (6)
  - Pneumonia [Fatal]
  - Septic shock [Unknown]
  - Fatigue [Unknown]
  - Dyspnoea [Unknown]
  - Pyrexia [Unknown]
  - Respiratory failure [Unknown]
